FAERS Safety Report 7657055-0 (Version None)
Quarter: 2011Q3

REPORT INFORMATION
  Report Type: 
  Country: None (occurrence: None)
  Receive Date: 20110801
  Receipt Date: 20110715
  Transmission Date: 20111222
  Serious: Yes (Hospitalization, Other)
  Sender: FDA-Public Use
  Company Number: 2011MA008952

PATIENT
  Age: 31 Year
  Sex: Female

DRUGS (2)
  1. SULFATRIM PEDIATRIC [Suspect]
     Indication: SUBCUTANEOUS ABSCESS
  2. NAPROXEN [Suspect]

REACTIONS (2)
  - STEVENS-JOHNSON SYNDROME [None]
  - TOXIC EPIDERMAL NECROLYSIS [None]
